FAERS Safety Report 4312830-5 (Version None)
Quarter: 2004Q1

REPORT INFORMATION
  Report Type: 
  Country: None (occurrence: None)
  Receive Date: 20040304
  Receipt Date: 20040223
  Transmission Date: 20041129
  Serious: Yes (Death)
  Sender: FDA-Public Use
  Company Number: 066-20785-04020673

PATIENT
  Age: 74 Year
  Sex: Female

DRUGS (1)
  1. THALIDOMIDE (THALIDOMIDE) (200 MILLIGRAM, CAPSULES) [Suspect]
     Indication: LEUKAEMIA PLASMACYTIC
     Dosage: 200 MG, QD, ORAL
     Route: 048

REACTIONS (4)
  - CONSTIPATION [None]
  - PSEUDOMONAS INFECTION [None]
  - SEDATION [None]
  - SEPSIS [None]
